FAERS Safety Report 5062245-X (Version None)
Quarter: 2006Q3

REPORT INFORMATION
  Report Type: 
  Country: None (occurrence: None)
  Receive Date: 20060721
  Receipt Date: 20060711
  Transmission Date: 20061208
  Serious: Yes (Life-Threatening, Hospitalization)
  Sender: FDA-Public Use
  Company Number: 2006085286

PATIENT
  Age: 87 Year
  Sex: Male

DRUGS (1)
  1. LINEZOLID [Suspect]
     Indication: BACTERIAL INFECTION
     Dosage: 1200 MG (600 MG, 2 IN 1 D), ORAL
     Route: 048
     Dates: start: 20060113, end: 20060224

REACTIONS (2)
  - ANAEMIA [None]
  - JAUNDICE [None]
